FAERS Safety Report 9016534 (Version 1)
Quarter: 2013Q1

REPORT INFORMATION
  Report Type: Spontaneous
  Country: US (occurrence: US)
  Receive Date: 20130116
  Receipt Date: 20130116
  Transmission Date: 20140127
  Serious: Yes (Other)
  Sender: FDA-Public Use
  Company Number: US-009507513-1301USA003465

PATIENT
  Sex: Male

DRUGS (7)
  1. MONTELUKAST SODIUM [Suspect]
     Indication: URTICARIA
     Dosage: 10 MG, UNK
  2. RUPATADINE [Suspect]
  3. EBASTINE [Suspect]
  4. FEXOFENADINE HYDROCHLORIDE [Suspect]
  5. DESLORATADINE [Suspect]
  6. HYDROXYZINE [Suspect]
  7. CETIRIZINE HYDROCHLORIDE [Suspect]

REACTIONS (1)
  - Urticaria [Unknown]
